FAERS Safety Report 23202714 (Version 2)
Quarter: 2024Q1

REPORT INFORMATION
  Report Type: Spontaneous
  Country: JP (occurrence: JP)
  Receive Date: 20231120
  Receipt Date: 20240221
  Transmission Date: 20240410
  Serious: Yes (Other)
  Sender: FDA-Public Use
  Company Number: JP-BAYER-2023A158287

PATIENT
  Age: 8 Decade
  Sex: Female

DRUGS (1)
  1. ADEMPAS [Suspect]
     Active Substance: RIOCIGUAT
     Indication: Pulmonary hypertension
     Dosage: 1.5 MG, TID
     Dates: start: 20191220, end: 20231102

REACTIONS (4)
  - Cardiac failure high output [Unknown]
  - Oedema peripheral [Recovering/Resolving]
  - Pulmonary arterial wedge pressure increased [Unknown]
  - Cardiac index increased [None]

NARRATIVE: CASE EVENT DATE: 20230822
